FAERS Safety Report 18070404 (Version 1)
Quarter: 2020Q3

REPORT INFORMATION
  Report Type: Spontaneous
  Country: US (occurrence: US)
  Receive Date: 20200727
  Receipt Date: 20200727
  Transmission Date: 20201103
  Serious: No
  Sender: FDA-Public Use
  Company Number: US-ALKEM LABORATORIES LIMITED-US-ALKEM-2020-00287

PATIENT

DRUGS (2)
  1. MARINOL [Suspect]
     Active Substance: DRONABINOL
     Indication: NAUSEA
     Dosage: UNK
     Route: 065
  2. MARINOL [Suspect]
     Active Substance: DRONABINOL
     Indication: VOMITING

REACTIONS (1)
  - Drug ineffective [Unknown]
